FAERS Safety Report 18245363 (Version 1)
Quarter: 2020Q3

REPORT INFORMATION
  Report Type: Spontaneous
  Country: US (occurrence: US)
  Receive Date: 20200909
  Receipt Date: 20200909
  Transmission Date: 20201103
  Serious: Yes (Hospitalization, Other)
  Sender: FDA-Public Use
  Company Number: US-AUROBINDO-AUR-APL-2020-046590

PATIENT
  Age: 36 Year
  Sex: Male

DRUGS (10)
  1. CEFAZOLIN [Concomitant]
     Active Substance: CEFAZOLIN
     Indication: INFECTION
     Dosage: UNK
     Route: 065
  2. COLCHICINE. [Suspect]
     Active Substance: COLCHICINE
     Indication: PERICARDITIS
     Dosage: UNK
     Route: 065
  3. VANCOMYCIN [Concomitant]
     Active Substance: VANCOMYCIN
     Indication: PRODUCT USED FOR UNKNOWN INDICATION
     Dosage: UNK
     Route: 065
  4. IBUPROFEN. [Suspect]
     Active Substance: IBUPROFEN
     Indication: CHEST PAIN
  5. HYDROCODONE [Suspect]
     Active Substance: HYDROCODONE
     Indication: PERICARDITIS
     Dosage: UNK
     Route: 065
  6. IBUPROFEN. [Suspect]
     Active Substance: IBUPROFEN
     Indication: PERICARDITIS
     Dosage: UNK
     Route: 065
  7. ASPIRIN. [Suspect]
     Active Substance: ASPIRIN
     Indication: PERICARDITIS
     Dosage: UNK
     Route: 065
  8. COLCHICINE. [Suspect]
     Active Substance: COLCHICINE
     Indication: CHEST PAIN
  9. HYDROCODONE [Suspect]
     Active Substance: HYDROCODONE
     Indication: CHEST PAIN
  10. ASPIRIN. [Suspect]
     Active Substance: ASPIRIN
     Indication: CHEST PAIN

REACTIONS (1)
  - Drug ineffective [Unknown]
